FAERS Safety Report 15637228 (Version 1)
Quarter: 2018Q4

REPORT INFORMATION
  Report Type: Spontaneous
  Country: US (occurrence: US)
  Receive Date: 20181120
  Receipt Date: 20181120
  Transmission Date: 20190205
  Serious: No
  Sender: FDA-Public Use
  Company Number: US-JNJFOC-20180423649

PATIENT
  Sex: Male

DRUGS (10)
  1. ESCITALOPRAM [Concomitant]
     Active Substance: ESCITALOPRAM OXALATE
  2. TAMSULOSIN [Concomitant]
     Active Substance: TAMSULOSIN
  3. CLOPIDOGREL [Concomitant]
     Active Substance: CLOPIDOGREL BISULFATE
  4. ZITHROMAX [Concomitant]
     Active Substance: AZITHROMYCIN DIHYDRATE
  5. IMBRUVICA [Suspect]
     Active Substance: IBRUTINIB
     Indication: IRON DEFICIENCY ANAEMIA
     Route: 048
     Dates: end: 201804
  6. VITAMIN D [Concomitant]
     Active Substance: CHOLECALCIFEROL
  7. FUROSEMIDE. [Concomitant]
     Active Substance: FUROSEMIDE
  8. TRAMADOL. [Concomitant]
     Active Substance: TRAMADOL
  9. OMEPRAZOLE. [Concomitant]
     Active Substance: OMEPRAZOLE
  10. CYANOCOBALAMIN. [Concomitant]
     Active Substance: CYANOCOBALAMIN

REACTIONS (4)
  - Scratch [Unknown]
  - Scab [Unknown]
  - Off label use [Unknown]
  - Product use in unapproved indication [Unknown]
